FAERS Safety Report 19728411 (Version 2)
Quarter: 2021Q3

REPORT INFORMATION
  Report Type: Report from Study
  Country: FR (occurrence: FR)
  Receive Date: 20210820
  Receipt Date: 20210906
  Transmission Date: 20211014
  Serious: Yes (Hospitalization)
  Sender: FDA-Public Use
  Company Number: FR-JNJFOC-20210826527

PATIENT
  Age: 43 Year
  Sex: Female
  Weight: 110 kg

DRUGS (5)
  1. AZATHIOPRINE. [Suspect]
     Active Substance: AZATHIOPRINE
     Indication: CROHN^S DISEASE
     Route: 065
     Dates: start: 20060101, end: 201809
  2. METHOTREXATE. [Suspect]
     Active Substance: METHOTREXATE
     Indication: CROHN^S DISEASE
     Route: 065
     Dates: start: 201809
  3. REMICADE [Suspect]
     Active Substance: INFLIXIMAB
     Indication: CROHN^S DISEASE
     Route: 042
     Dates: start: 20151031, end: 20180907
  4. METHOTREXATE. [Suspect]
     Active Substance: METHOTREXATE
     Indication: PSORIASIS
     Route: 058
     Dates: start: 20180907
  5. AZATHIOPRINE. [Suspect]
     Active Substance: AZATHIOPRINE
     Route: 048

REACTIONS (6)
  - Varicella [Recovered/Resolved]
  - Rash pustular [Recovered/Resolved]
  - Paradoxical psoriasis [Recovering/Resolving]
  - Psoriasis [Unknown]
  - Pain [Unknown]
  - Superinfection [Recovered/Resolved]

NARRATIVE: CASE EVENT DATE: 20181024
